FAERS Safety Report 25978322 (Version 2)
Quarter: 2025Q4

REPORT INFORMATION
  Report Type: Spontaneous
  Country: US (occurrence: US)
  Receive Date: 20251030
  Receipt Date: 20251215
  Transmission Date: 20260118
  Serious: No
  Sender: TOLMAR
  Company Number: US-Tolmar-TLM-2025-07935

PATIENT

DRUGS (2)
  1. ELIGARD [Suspect]
     Active Substance: LEUPROLIDE ACETATE
     Indication: Prostate cancer
     Dosage: DEC-2026; NOV;2026; NOV-2026?NDC: 62935-461-50?SN: 3314947178278?GTIN: 00362935461500?DOSE NOT ADMIN
     Route: 065
  2. DEVICE [Suspect]
     Active Substance: DEVICE
     Indication: Prostate cancer
     Dosage: DEC-2026; NOV;2026; NOV-2026?NDC: 62935-461-50?SN: 3314947178278?GTIN: 00362935461500

REACTIONS (5)
  - Intercepted product preparation error [Unknown]
  - Wrong technique in product usage process [Unknown]
  - Device leakage [Unknown]
  - Device occlusion [Unknown]
  - Product quality issue [Unknown]
